FAERS Safety Report 8279014-X (Version None)
Quarter: 2012Q2

REPORT INFORMATION
  Report Type: 
  Country: None (occurrence: None)
  Receive Date: 20120412
  Receipt Date: 20110715
  Transmission Date: 20120825
  Serious: No
  Sender: FDA-Public Use
  Company Number: US-ASTRAZENECA-2011SE42606

PATIENT
  Age: 55 Year
  Sex: Male
  Weight: 113.4 kg

DRUGS (7)
  1. NEXIUM [Suspect]
     Indication: GASTROOESOPHAGEAL REFLUX DISEASE
     Route: 048
     Dates: start: 20010101
  2. NIASIN [Concomitant]
  3. SINGULAIR [Concomitant]
  4. HYZAAR [Concomitant]
  5. GLYPIZIDE [Concomitant]
  6. METFORMIN HCL [Concomitant]
  7. TRILIPIX [Concomitant]

REACTIONS (2)
  - POLYPECTOMY [None]
  - GASTRIC MUCOSA ERYTHEMA [None]
